FAERS Safety Report 24594329 (Version 1)
Quarter: 2024Q4

REPORT INFORMATION
  Report Type: Report from Study
  Country: CA (occurrence: CA)
  Receive Date: 20241108
  Receipt Date: 20241108
  Transmission Date: 20250114
  Serious: Yes (Other)
  Sender: REGENERON
  Company Number: CA-REGENERON PHARMACEUTICALS, INC.-2024-105916

PATIENT
  Sex: Female

DRUGS (6)
  1. CEMIPLIMAB [Suspect]
     Active Substance: CEMIPLIMAB
     Indication: Basal cell carcinoma
     Dosage: 350 MG, Q3W
     Route: 042
     Dates: start: 20231116
  2. ONDANSETRON [Concomitant]
     Active Substance: ONDANSETRON
     Indication: Nausea
     Dosage: UNK
  3. NABILONE [Concomitant]
     Active Substance: NABILONE
     Indication: Product used for unknown indication
     Dosage: UNK
  4. SODIUM CHLORIDE [Concomitant]
     Active Substance: SODIUM CHLORIDE
     Indication: Premedication
     Dosage: UNK, Q3W
     Route: 042
     Dates: start: 20231116
  5. DICLOFENAC [Concomitant]
     Active Substance: DICLOFENAC
     Indication: Pain
  6. ROBAXACET [Concomitant]
     Active Substance: ACETAMINOPHEN\METHOCARBAMOL
     Indication: Product used for unknown indication
     Dosage: UNK

REACTIONS (36)
  - Loss of consciousness [Recovered/Resolved]
  - Syncope [Recovered/Resolved]
  - Cortisol decreased [Unknown]
  - Blood potassium decreased [Not Recovered/Not Resolved]
  - Oropharyngeal pain [Not Recovered/Not Resolved]
  - Temperature intolerance [Unknown]
  - Pain [Not Recovered/Not Resolved]
  - Lip dry [Not Recovered/Not Resolved]
  - Blood potassium increased [Not Recovered/Not Resolved]
  - Skin warm [Not Recovered/Not Resolved]
  - Peripheral coldness [Not Recovered/Not Resolved]
  - Dizziness [Recovered/Resolved]
  - Back pain [Not Recovered/Not Resolved]
  - Neck pain [Not Recovered/Not Resolved]
  - Cough [Not Recovered/Not Resolved]
  - Productive cough [Recovered/Resolved]
  - Nasopharyngitis [Not Recovered/Not Resolved]
  - Blood thyroid stimulating hormone increased [Not Recovered/Not Resolved]
  - Nausea [Not Recovered/Not Resolved]
  - Vomiting [Unknown]
  - Fatigue [Not Recovered/Not Resolved]
  - Rash [Recovering/Resolving]
  - Skin disorder [Unknown]
  - Scab [Unknown]
  - Constipation [Not Recovered/Not Resolved]
  - Heart rate increased [Not Recovered/Not Resolved]
  - Feeling hot [Unknown]
  - Hyperhidrosis [Unknown]
  - Pallor [Unknown]
  - Hyperhidrosis [Unknown]
  - Visual impairment [Unknown]
  - Pulse abnormal [Unknown]
  - Speech disorder [Unknown]
  - Vision blurred [Recovered/Resolved]
  - Hypotension [Not Recovered/Not Resolved]
  - Oxygen saturation decreased [Recovered/Resolved]

NARRATIVE: CASE EVENT DATE: 20240604
